FAERS Safety Report 5226541-5 (Version None)
Quarter: 2007Q1

REPORT INFORMATION
  Report Type: 
  Country: None (occurrence: None)
  Receive Date: 20061201
  Receipt Date: 20060921
  Transmission Date: 20070707
  Serious: No
  Sender: FDA-Public Use
  Company Number: US200609005551

PATIENT
  Age: 58 Year
  Sex: Female

DRUGS (3)
  1. CYMBALTA [Suspect]
     Indication: ANXIETY
     Dosage: 30 MG, DAILY (1/D), ORAL
     Route: 048
     Dates: start: 20060919
  2. PREVACID [Concomitant]
  3. ASPIRIN [Concomitant]

REACTIONS (2)
  - DYSPNOEA [None]
  - TREMOR [None]
